FAERS Safety Report 4854032-X (Version None)
Quarter: 2005Q4

REPORT INFORMATION
  Report Type: 
  Country: None (occurrence: None)
  Receive Date: 20051213
  Receipt Date: 20051201
  Transmission Date: 20060501
  Serious: Yes (Other)
  Sender: FDA-Public Use
  Company Number: 230268M05USA

PATIENT
  Age: 37 Year
  Sex: Female

DRUGS (2)
  1. REBIF [Suspect]
     Indication: MULTIPLE SCLEROSIS
     Dosage: 8.8 MCG
     Dates: start: 20050923, end: 20051012
  2. THYROID MEDICATION (THYROID THERAPY) [Concomitant]

REACTIONS (2)
  - HEPATOCELLULAR DAMAGE [None]
  - PYREXIA [None]
